FAERS Safety Report 8153533-9 (Version None)
Quarter: 2012Q1

REPORT INFORMATION
  Report Type: 
  Country: None (occurrence: None)
  Receive Date: 20120216
  Receipt Date: 20120216
  Transmission Date: 20120608
  Serious: Yes (Hospitalization)
  Sender: FDA-Public Use
  Company Number: None

PATIENT
  Sex: Male
  Weight: 86.9 kg

DRUGS (2)
  1. TAXOL [Suspect]
     Dosage: 520 MG
     Dates: end: 20120125
  2. CARBOPLATIN [Suspect]
     Dosage: 1352 MG
     Dates: start: 20120118, end: 20120125

REACTIONS (11)
  - DIARRHOEA [None]
  - URINARY TRACT INFECTION [None]
  - HYPOTENSION [None]
  - LYMPHOPENIA [None]
  - NEUTROPENIA [None]
  - NAUSEA [None]
  - DIZZINESS [None]
  - DEHYDRATION [None]
  - DECREASED APPETITE [None]
  - HYPOPHAGIA [None]
  - LEUKOPENIA [None]
